FAERS Safety Report 22324703 (Version 1)
Quarter: 2023Q2

REPORT INFORMATION
  Report Type: Spontaneous
  Country: US (occurrence: US)
  Receive Date: 20230516
  Receipt Date: 20230516
  Transmission Date: 20230722
  Serious: Yes (Hospitalization)
  Sender: FDA-Public Use
  Company Number: US-PFIZER INC-PV202300086420

PATIENT
  Age: 35 Year
  Sex: Male

DRUGS (1)
  1. OXBRYTA [Suspect]
     Active Substance: VOXELOTOR
     Dosage: TAKING 500MG/TAKE 3 OXB. TABS DAILY

REACTIONS (2)
  - Haemoglobin decreased [Unknown]
  - Intentional product use issue [Unknown]
